FAERS Safety Report 16300178 (Version 1)
Quarter: 2019Q2

REPORT INFORMATION
  Report Type: Spontaneous
  Country: ES (occurrence: ES)
  Receive Date: 20190510
  Receipt Date: 20190510
  Transmission Date: 20190711
  Serious: Yes (Other)
  Sender: FDA-Public Use
  Company Number: PHHY2019ES105192

PATIENT
  Age: 84 Year
  Sex: Male

DRUGS (4)
  1. CEFUROXIME. [Suspect]
     Active Substance: CEFUROXIME
     Indication: PROSTATITIS
     Dosage: UNK
     Route: 042
     Dates: start: 20190313, end: 20190319
  2. IBUPROFENO [Suspect]
     Active Substance: IBUPROFEN
     Indication: ARTHRALGIA
     Dosage: 600 MG, Q12H
     Route: 048
     Dates: start: 20190316, end: 20190318
  3. CETRIMONIUM [Suspect]
     Active Substance: CETRIMONIUM BROMIDE
     Indication: HYPERURICAEMIA
     Dosage: 1 MG, Q12H
     Route: 048
     Dates: start: 20190314, end: 20190319
  4. METAMIZOLE [Suspect]
     Active Substance: METAMIZOLE
     Indication: ARTHRALGIA
     Dosage: 2 G, Q12H
     Route: 042
     Dates: start: 20190311, end: 20190319

REACTIONS (1)
  - Cutaneous vasculitis [Recovered/Resolved]

NARRATIVE: CASE EVENT DATE: 20190319
